FAERS Safety Report 5881530-2 (Version None)
Quarter: 2008Q3

REPORT INFORMATION
  Report Type: 
  Country: None (occurrence: None)
  Receive Date: 20080911
  Receipt Date: 20080827
  Transmission Date: 20090109
  Serious: Yes (Hospitalization)
  Sender: FDA-Public Use
  Company Number: ALA_00182_2008

PATIENT
  Age: 29 Year
  Sex: Female

DRUGS (5)
  1. MESALAMINE [Suspect]
     Indication: CROHN'S DISEASE
     Dosage: 2000 MG BID ORAL
     Route: 048
  2. MERCAPTOPURINE [Suspect]
     Indication: CROHN'S DISEASE
     Dosage: 100 MG, DF, 150 MG
  3. PREDNISONE [Concomitant]
  4. CLIDINIUM BROMIDE [Concomitant]
  5. CHLORDIAZEPOXIDE [Concomitant]

REACTIONS (13)
  - ABASIA [None]
  - ALANINE AMINOTRANSFERASE ABNORMAL [None]
  - ASPARTATE AMINOTRANSFERASE ABNORMAL [None]
  - BLOOD BILIRUBIN ABNORMAL [None]
  - BLOOD LACTATE DEHYDROGENASE ABNORMAL [None]
  - DRUG INTERACTION [None]
  - DRUG TOXICITY [None]
  - ENZYME ABNORMALITY [None]
  - HAEMOGLOBIN ABNORMAL [None]
  - HYPOPHAGIA [None]
  - NAUSEA [None]
  - PALMAR-PLANTAR ERYTHRODYSAESTHESIA SYNDROME [None]
  - WHITE BLOOD CELL COUNT ABNORMAL [None]
